FAERS Safety Report 12459440 (Version 1)
Quarter: 2016Q2

REPORT INFORMATION
  Report Type: Spontaneous
  Country: US (occurrence: US)
  Receive Date: 20160613
  Receipt Date: 20160613
  Transmission Date: 20160815
  Serious: No
  Sender: FDA-Public Use
  Company Number: US-GLAXOSMITHKLINE-US2016GSK076560

PATIENT
  Age: 63 Year
  Sex: Male

DRUGS (2)
  1. SULFUR. [Suspect]
     Active Substance: SULFUR
  2. LAMICTAL [Suspect]
     Active Substance: LAMOTRIGINE

REACTIONS (1)
  - Drug hypersensitivity [Unknown]
